FAERS Safety Report 9738749 (Version 1)
Quarter: 2013Q4

REPORT INFORMATION
  Report Type: Spontaneous
  Country: IN (occurrence: IN)
  Receive Date: 20131209
  Receipt Date: 20131209
  Transmission Date: 20140711
  Serious: Yes (Death, Hospitalization)
  Sender: FDA-Public Use
  Company Number: IN-JNJFOC-20131118019

PATIENT
  Age: 55 Year
  Sex: Male

DRUGS (1)
  1. ZYTIGA [Suspect]
     Indication: PROSTATE CANCER
     Route: 048
     Dates: end: 20131120

REACTIONS (4)
  - Death [Fatal]
  - Lung infection [Fatal]
  - Bone marrow failure [Fatal]
  - Bronchospasm [Fatal]
